FAERS Safety Report 17476964 (Version 1)
Quarter: 2020Q1

REPORT INFORMATION
  Report Type: Report from Study
  Country: FR (occurrence: FR)
  Receive Date: 20200228
  Receipt Date: 20200228
  Transmission Date: 20200409
  Serious: Yes (Hospitalization)
  Sender: FDA-Public Use
  Company Number: FR-JNJFOC-20191111230

PATIENT
  Sex: Male

DRUGS (21)
  1. STELARA [Suspect]
     Active Substance: USTEKINUMAB
     Indication: PSORIASIS
     Route: 058
     Dates: start: 20170322, end: 20170422
  2. CLARELUX [Concomitant]
     Active Substance: CLOBETASOL PROPIONATE
     Route: 065
     Dates: start: 20160527
  3. DEXERYL                            /01579901/ [Concomitant]
     Active Substance: GLYCERIN\MINERAL OIL\PETROLATUM
     Route: 065
     Dates: end: 20190411
  4. TALTZ [Concomitant]
     Active Substance: IXEKIZUMAB
     Route: 065
     Dates: start: 20170731, end: 20170814
  5. STELARA [Suspect]
     Active Substance: USTEKINUMAB
     Route: 058
     Dates: start: 20170422, end: 20170424
  6. KETOCONAZOLE. [Concomitant]
     Active Substance: KETOCONAZOLE
     Route: 065
     Dates: start: 20140901, end: 20191104
  7. DERMOVAL                           /00008501/ [Concomitant]
     Active Substance: CLOBETASOL PROPIONATE
     Route: 065
     Dates: start: 20140623, end: 20191104
  8. MUPIDERM [Concomitant]
     Active Substance: MUPIROCIN
     Route: 065
     Dates: start: 2013, end: 20191104
  9. SEBIPROX [Concomitant]
     Active Substance: CICLOPIROX OLAMINE
     Route: 065
     Dates: start: 20110217
  10. DAIVOBET [Concomitant]
     Active Substance: BETAMETHASONE DIPROPIONATE\CALCIPOTRIENE
     Route: 065
     Dates: start: 2011, end: 20191104
  11. SYMBICORT [Concomitant]
     Active Substance: BUDESONIDE\FORMOTEROL FUMARATE DIHYDRATE
     Route: 065
     Dates: end: 20191104
  12. BETNEVAL [Concomitant]
     Active Substance: BETAMETHASONE VALERATE
     Dates: start: 20171023, end: 20191104
  13. MYCOSTERIL [Concomitant]
     Route: 065
     Dates: start: 20110207, end: 20170424
  14. TALTZ [Concomitant]
     Active Substance: IXEKIZUMAB
     Route: 065
     Dates: start: 20171023, end: 20191104
  15. ENSTILAR [Concomitant]
     Active Substance: BETAMETHASONE DIPROPIONATE\CALCIPOTRIENE HYDRATE
     Dates: start: 20191104, end: 20191104
  16. ROZEX (METRONIDAZOLE) [Concomitant]
     Active Substance: METRONIDAZOLE
     Route: 065
     Dates: start: 20140512
  17. DOXYCYCLINE MONOHYDRATE [Concomitant]
     Active Substance: DOXYCYCLINE
     Route: 065
     Dates: start: 20140901
  18. DIPROSONE                          /00008502/ [Concomitant]
     Active Substance: BETAMETHASONE SODIUM PHOSPHATE
     Route: 065
     Dates: start: 20140113
  19. TALTZ [Concomitant]
     Active Substance: IXEKIZUMAB
     Route: 065
     Dates: start: 20170814, end: 20171023
  20. METRONIDAZOLE. [Concomitant]
     Active Substance: METRONIDAZOLE
     Route: 065
     Dates: start: 20140901
  21. KETODERM                           /00532501/ [Concomitant]
     Active Substance: KETOCONAZOLE
     Route: 065
     Dates: start: 20160613, end: 20191104

REACTIONS (1)
  - Complicated appendicitis [Recovered/Resolved]

NARRATIVE: CASE EVENT DATE: 20190911
